FAERS Safety Report 25071086 (Version 2)
Quarter: 2025Q3

REPORT INFORMATION
  Report Type: Spontaneous
  Country: US (occurrence: US)
  Receive Date: 20250312
  Receipt Date: 20250704
  Transmission Date: 20251021
  Serious: Yes (Hospitalization)
  Sender: TRAVERE THERAPEUTICS
  Company Number: US-TRAVERE-2025TVT00289

PATIENT
  Sex: Male

DRUGS (2)
  1. FILSPARI [Suspect]
     Active Substance: SPARSENTAN
     Indication: IgA nephropathy
     Route: 048
     Dates: start: 20241020
  2. FILSPARI [Suspect]
     Active Substance: SPARSENTAN
     Route: 048
     Dates: start: 20241010

REACTIONS (7)
  - Hospitalisation [Unknown]
  - Hepatic infarction [Unknown]
  - Dyspnoea [Unknown]
  - Dizziness [Unknown]
  - Fatigue [Unknown]
  - Chest discomfort [Unknown]
  - Symptom recurrence [Unknown]
